FAERS Safety Report 12657294 (Version 2)
Quarter: 2016Q3

REPORT INFORMATION
  Report Type: Spontaneous
  Country: US (occurrence: US)
  Receive Date: 20160816
  Receipt Date: 20160830
  Transmission Date: 20161109
  Serious: Yes (Other)
  Sender: FDA-Public Use
  Company Number: US-TEVA-683800USA

PATIENT
  Age: 26 Year
  Sex: Female

DRUGS (3)
  1. COPAXONE [Suspect]
     Active Substance: GLATIRAMER ACETATE
     Indication: MULTIPLE SCLEROSIS
     Route: 058
     Dates: start: 20160509, end: 20160802
  2. AUBAGIO [Concomitant]
     Active Substance: TERIFLUNOMIDE
  3. GABAPENTIN. [Concomitant]
     Active Substance: GABAPENTIN

REACTIONS (1)
  - Hypoaesthesia [Unknown]

NARRATIVE: CASE EVENT DATE: 201608
